FAERS Safety Report 5282019-4 (Version None)
Quarter: 2007Q2

REPORT INFORMATION
  Report Type: 
  Country: None (occurrence: None)
  Receive Date: 20070330
  Receipt Date: 20070321
  Transmission Date: 20071010
  Serious: Yes (Death, Hospitalization)
  Sender: FDA-Public Use
  Company Number: GB-ABBOTT-07P-167-0362745-00

PATIENT
  Age: 50 Year
  Sex: Male
  Weight: 70 kg

DRUGS (5)
  1. KALETRA [Suspect]
     Indication: DRUG USE FOR UNKNOWN INDICATION
     Dates: start: 20041101, end: 20051227
  2. LOPINAVIR [Suspect]
     Indication: HIV INFECTION
     Dates: start: 20041116, end: 20051227
  3. VIREAD [Suspect]
     Indication: HIV INFECTION
     Dates: start: 20041116, end: 20051227
  4. ZIDOVUDINE [Suspect]
     Indication: HIV INFECTION
     Dates: start: 20050701, end: 20051227
  5. DIDANOSINE [Suspect]
     Indication: DRUG USE FOR UNKNOWN INDICATION
     Dates: start: 20041101

REACTIONS (6)
  - HERPES ZOSTER MULTI-DERMATOMAL [None]
  - LACTIC ACIDOSIS [None]
  - POST HERPETIC NEURALGIA [None]
  - RENAL FAILURE ACUTE [None]
  - THERAPEUTIC AGENT TOXICITY [None]
  - VOMITING [None]
